FAERS Safety Report 8321364 (Version 4)
Quarter: 2014Q1

REPORT INFORMATION
  Report Type: Spontaneous
  Country: US (occurrence: US)
  Receive Date: 20120104
  Receipt Date: 20140108
  Transmission Date: 20141002
  Serious: Yes (Hospitalization)
  Sender: FDA-Public Use
  Company Number: US-GLAXOSMITHKLINE-A0896545A

PATIENT
  Sex: Male
  Weight: 63.6 kg

DRUGS (2)
  1. AVANDIA [Suspect]
     Indication: DIABETES MELLITUS
     Dosage: 4MG PER DAY
     Route: 048
     Dates: start: 2000, end: 2007
  2. AVANDARYL [Suspect]
     Indication: DIABETES MELLITUS
     Route: 048

REACTIONS (5)
  - Myocardial infarction [Unknown]
  - Cardiac failure congestive [Unknown]
  - Ischaemic cardiomyopathy [Unknown]
  - Cardiac disorder [Unknown]
  - Cardiovascular disorder [Unknown]
